FAERS Safety Report 4391593-1 (Version None)
Quarter: 2004Q3

REPORT INFORMATION
  Report Type: 
  Country: None (occurrence: None)
  Receive Date: 20040702
  Receipt Date: 20040212
  Transmission Date: 20050211
  Serious: No
  Sender: FDA-Public Use
  Company Number: 2004UW00527

PATIENT
  Age: 76 Year
  Sex: Female

DRUGS (1)
  1. CRESTOR [Suspect]
     Indication: LIPIDS INCREASED
     Dosage: 20 MG QD PO
     Route: 048
     Dates: start: 20031119, end: 20040102

REACTIONS (2)
  - DRUG INEFFECTIVE [None]
  - MYALGIA [None]
